FAERS Safety Report 14674733 (Version 1)
Quarter: 2018Q1

REPORT INFORMATION
  Report Type: Report from Study
  Country: US (occurrence: US)
  Receive Date: 20180323
  Receipt Date: 20180323
  Transmission Date: 20180509
  Serious: Yes (Hospitalization, Other)
  Sender: FDA-Public Use
  Company Number: US-JNJFOC-20180116921

PATIENT
  Age: 76 Year
  Sex: Male

DRUGS (14)
  1. ZOFRAN [Concomitant]
     Active Substance: ONDANSETRON HYDROCHLORIDE
  2. METOPROLOL SUCCINATE. [Concomitant]
     Active Substance: METOPROLOL SUCCINATE
  3. XARELTO [Concomitant]
     Active Substance: RIVAROXABAN
  4. IMBRUVICA [Suspect]
     Active Substance: IBRUTINIB
     Indication: CHRONIC LYMPHOCYTIC LEUKAEMIA
     Route: 048
     Dates: start: 20161220
  5. TAMSULOSIN [Concomitant]
     Active Substance: TAMSULOSIN
  6. HYDROCODONE BITARTRATE AND ACETAMINOPHEN [Concomitant]
     Active Substance: ACETAMINOPHEN\HYDROCODONE BITARTRATE
     Dosage: 7.5-500MG/15ML (15ML)
  7. ZANTAC [Concomitant]
     Active Substance: RANITIDINE HYDROCHLORIDE
  8. ALLOPURINOL. [Concomitant]
     Active Substance: ALLOPURINOL
  9. ATIVAN [Concomitant]
     Active Substance: LORAZEPAM
  10. MAGNESIUM OXIDE. [Concomitant]
     Active Substance: MAGNESIUM OXIDE
  11. HYDROCODONE BITARTRATE AND ACETAMINOPHEN [Concomitant]
     Active Substance: ACETAMINOPHEN\HYDROCODONE BITARTRATE
     Dosage: 10-325MG/15L
  12. FLEXERIL [Concomitant]
     Active Substance: CYCLOBENZAPRINE HYDROCHLORIDE
     Route: 065
  13. BISOPROLOL HCT [Concomitant]
     Active Substance: BISOPROLOL FUMARATE\HYDROCHLOROTHIAZIDE
     Dosage: 5-6.2 MG
  14. SULFAMETHOXAZOLE W/TRIMETHOPRIM [Concomitant]
     Active Substance: SULFAMETHOXAZOLE\TRIMETHOPRIM
     Dosage: 200-40 MG/5ML

REACTIONS (16)
  - Prostatomegaly [Unknown]
  - Pulmonary mass [Unknown]
  - Interstitial lung disease [Unknown]
  - Haemorrhagic diathesis [Unknown]
  - Arthralgia [Unknown]
  - Dyspepsia [Unknown]
  - Urine output decreased [Recovered/Resolved]
  - Anaemia [Unknown]
  - Joint swelling [Unknown]
  - Anxiety [Unknown]
  - Myalgia [Unknown]
  - Deafness unilateral [Unknown]
  - Joint stiffness [Unknown]
  - Increased tendency to bruise [Unknown]
  - Diplopia [Unknown]
  - Contusion [Unknown]

NARRATIVE: CASE EVENT DATE: 20171110
